FAERS Safety Report 24632285 (Version 1)
Quarter: 2024Q4

REPORT INFORMATION
  Report Type: Spontaneous
  Country: US (occurrence: None)
  Receive Date: 20241118
  Receipt Date: 20241118
  Transmission Date: 20250114
  Serious: Yes (Life-Threatening, Hospitalization)
  Sender: Public
  Company Number: None

PATIENT
  Age: 42 Year
  Sex: Male
  Weight: 80 kg

DRUGS (1)
  1. RIVAROXABAN [Suspect]
     Active Substance: RIVAROXABAN
     Indication: Deep vein thrombosis
     Dates: start: 20171106

REACTIONS (13)
  - Cerebral haemorrhage [None]
  - Injury [None]
  - Fall [None]
  - Unresponsive to stimuli [None]
  - Head injury [None]
  - Subdural haematoma [None]
  - Contusion [None]
  - Skull fracture [None]
  - Pneumocephalus [None]
  - Cerebral venous sinus thrombosis [None]
  - Vascular pseudoaneurysm [None]
  - Pneumonitis aspiration [None]
  - Internal carotid artery deformity [None]

NARRATIVE: CASE EVENT DATE: 20240708
